FAERS Safety Report 5850431-8 (Version None)
Quarter: 2008Q3

REPORT INFORMATION
  Report Type: 
  Country: None (occurrence: None)
  Receive Date: 20080819
  Receipt Date: 20080807
  Transmission Date: 20090109
  Serious: Yes (Other)
  Sender: FDA-Public Use
  Company Number: AU-PFIZER INC-2008049015

PATIENT
  Sex: Female
  Weight: 73.1 kg

DRUGS (5)
  1. LIPITOR [Suspect]
     Indication: HYPERLIPIDAEMIA
     Route: 048
  2. CALTRATE [Concomitant]
     Route: 048
  3. MAGMIN [Concomitant]
     Route: 048
  4. FISH OIL [Concomitant]
     Dosage: TEXT:ONE TO TWO
     Route: 048
  5. GLUCOSAMINE [Concomitant]
     Route: 048

REACTIONS (2)
  - BLOOD CHOLESTEROL INCREASED [None]
  - PAIN IN EXTREMITY [None]
